FAERS Safety Report 7037223-1 (Version None)
Quarter: 2010Q4

REPORT INFORMATION
  Report Type: 
  Country: None (occurrence: None)
  Receive Date: 20101011
  Receipt Date: 20101004
  Transmission Date: 20110411
  Serious: Yes (Hospitalization)
  Sender: FDA-Public Use
  Company Number: US-BAYER-201018965BCC

PATIENT
  Age: 89 Year
  Sex: Female
  Weight: 45 kg

DRUGS (4)
  1. ASPIRIN [Suspect]
     Indication: ARTHRALGIA
     Dosage: BOTTLE COUNT UNKNOWN
     Route: 048
     Dates: start: 20070101
  2. BAYER QUICK RELEASE CRYSTALS [Suspect]
     Indication: PRODUCT USED FOR UNKNOWN INDICATION
     Dosage: TOTAL DAILY DOSE: 1 DF  UNIT DOSE: 1 DF
     Route: 045
     Dates: start: 20090101
  3. ASPIRIN [Suspect]
     Indication: ARTHRALGIA
     Route: 048
  4. VITAMINS [Concomitant]
     Route: 065

REACTIONS (4)
  - CHOKING [None]
  - GASTROINTESTINAL HAEMORRHAGE [None]
  - HAEMATOCHEZIA [None]
  - ULCER HAEMORRHAGE [None]
